FAERS Safety Report 9542781 (Version 1)
Quarter: 2013Q3

REPORT INFORMATION
  Report Type: Spontaneous
  Country: US (occurrence: US)
  Receive Date: 20130923
  Receipt Date: 20130923
  Transmission Date: 20140515
  Serious: No
  Sender: FDA-Public Use
  Company Number: US-PFIZER INC-2013271107

PATIENT
  Age: 80 Year
  Sex: Female

DRUGS (8)
  1. LYRICA [Suspect]
     Indication: RHEUMATOID ARTHRITIS
     Dosage: 75 MG, 2X/DAY
     Route: 048
     Dates: start: 201304, end: 201304
  2. LYRICA [Suspect]
     Indication: FIBROMYALGIA
  3. LYRICA [Suspect]
     Indication: INTERVERTEBRAL DISC DEGENERATION
  4. LYRICA [Suspect]
     Indication: OSTEOARTHRITIS
  5. TYLENOL [Concomitant]
     Indication: PAIN
     Dosage: UNK
  6. GABAPENTIN [Concomitant]
     Indication: PAIN
     Dosage: UNK
  7. FLEXERIL [Concomitant]
     Indication: SLEEP DISORDER
     Dosage: UNK
  8. FLEXERIL [Concomitant]
     Indication: HYPOTONIA

REACTIONS (2)
  - Off label use [Recovered/Resolved]
  - Dizziness [Recovered/Resolved]
